FAERS Safety Report 8866111 (Version 3)
Quarter: 2013Q2

REPORT INFORMATION
  Report Type: Report from Study
  Country: DE (occurrence: DE)
  Receive Date: 20121025
  Receipt Date: 20130524
  Transmission Date: 20140414
  Serious: Yes (Life-Threatening, Hospitalization)
  Sender: FDA-Public Use
  Company Number: DE-TEVA-365874GER

PATIENT
  Age: 58 Year
  Sex: Female
  Weight: 102 kg

DRUGS (10)
  1. MYOCET [Suspect]
     Indication: BREAST CANCER
     Route: 042
     Dates: start: 20120809, end: 20121019
  2. CARBOPLATIN [Suspect]
     Indication: BREAST CANCER
     Route: 042
     Dates: start: 20120809, end: 20121019
  3. PACLITAXEL [Suspect]
     Indication: BREAST CANCER
     Route: 042
     Dates: start: 20120809, end: 20121019
  4. TRASTUZUMAB [Suspect]
     Indication: BREAST CANCER
     Route: 042
     Dates: start: 20120808, end: 20121019
  5. LAPATINIB [Suspect]
     Indication: BREAST CANCER
     Dosage: 750 MILLIGRAM DAILY;
     Route: 048
     Dates: start: 20120809, end: 20121007
  6. NEUPOGEN [Concomitant]
     Dosage: 300 MICROGRAM DAILY;
     Dates: start: 20120911, end: 20121007
  7. KEVATRIL [Concomitant]
     Dosage: 1 MILLIGRAM DAILY;
     Dates: start: 20120809, end: 20121002
  8. FENISTIL [Concomitant]
     Dosage: 4 MILLIGRAM DAILY;
     Dates: start: 20120809, end: 20121002
  9. RANITIC [Concomitant]
     Dosage: 5 ML DAILY;
     Dates: start: 20120809, end: 20121002
  10. DEXAMETHASONE [Concomitant]
     Dosage: 4 MILLIGRAM DAILY;
     Dates: start: 20120809, end: 20121002

REACTIONS (1)
  - Sepsis [Recovered/Resolved]
